FAERS Safety Report 22761540 (Version 3)
Quarter: 2024Q1

REPORT INFORMATION
  Report Type: Spontaneous
  Country: JP (occurrence: JP)
  Receive Date: 20230728
  Receipt Date: 20240319
  Transmission Date: 20240410
  Serious: Yes (Hospitalization, Other)
  Sender: FDA-Public Use
  Company Number: JP-UCBJ-CD202308082UCBPHAPROD

PATIENT
  Age: 91 Year
  Sex: Female

DRUGS (1)
  1. LEVETIRACETAM [Suspect]
     Active Substance: LEVETIRACETAM
     Indication: Epilepsy
     Dosage: UNK, 2X/DAY (BID) (12 HOURS)
     Route: 048

REACTIONS (3)
  - Hospitalisation [Unknown]
  - Renal impairment [Not Recovered/Not Resolved]
  - Anticonvulsant drug level increased [Not Recovered/Not Resolved]
